FAERS Safety Report 24438427 (Version 1)
Quarter: 2024Q4

REPORT INFORMATION
  Report Type: Spontaneous
  Country: US (occurrence: US)
  Receive Date: 20241015
  Receipt Date: 20241015
  Transmission Date: 20250115
  Serious: Yes (Hospitalization)
  Sender: PFIZER
  Company Number: US-PFIZER INC-202400274629

PATIENT
  Age: 54 Year
  Sex: Female

DRUGS (1)
  1. TIVDAK [Suspect]
     Active Substance: TISOTUMAB VEDOTIN-TFTV
     Dosage: 2 MG/KG, EVERY 3 WEEKS
     Route: 042
     Dates: start: 20240918

REACTIONS (1)
  - Small intestinal obstruction [Unknown]

NARRATIVE: CASE EVENT DATE: 20240101
